FAERS Safety Report 11599119 (Version 1)
Quarter: 2015Q4

REPORT INFORMATION
  Report Type: Spontaneous
  Country: CZ (occurrence: CZ)
  Receive Date: 20151006
  Receipt Date: 20151006
  Transmission Date: 20160304
  Serious: Yes (Death, Hospitalization)
  Sender: FDA-Public Use
  Company Number: CZ-MYLANLABS-2015M1033079

PATIENT

DRUGS (2)
  1. PROPAFENONE. [Interacting]
     Active Substance: PROPAFENONE
     Indication: PRODUCT USED FOR UNKNOWN INDICATION
     Route: 065
  2. METOPROLOL [Suspect]
     Active Substance: METOPROLOL
     Indication: PRODUCT USED FOR UNKNOWN INDICATION
     Route: 065

REACTIONS (10)
  - Overdose [Fatal]
  - Toxicity to various agents [Fatal]
  - Acute kidney injury [Fatal]
  - Seizure [Unknown]
  - Drug interaction [Fatal]
  - Brain oedema [Fatal]
  - Cardiac arrest [Fatal]
  - Completed suicide [Fatal]
  - Loss of consciousness [Unknown]
  - Electrocardiogram QRS complex prolonged [Unknown]
